FAERS Safety Report 13873827 (Version 1)
Quarter: 2017Q3

REPORT INFORMATION
  Report Type: Spontaneous
  Country: US (occurrence: US)
  Receive Date: 20170816
  Receipt Date: 20170816
  Transmission Date: 20171127
  Serious: No
  Sender: FDA-Public Use
  Company Number: US-INTERPRAG-PM-OCA2017-00503

PATIENT

DRUGS (1)
  1. OCALIVA [Suspect]
     Active Substance: OBETICHOLIC ACID
     Indication: MULTIPLE SCLEROSIS
     Dosage: 5 MG, QD
     Route: 048
     Dates: start: 201703

REACTIONS (3)
  - Pain [Unknown]
  - Pruritus [Unknown]
  - Product use in unapproved indication [Unknown]
